FAERS Safety Report 4482774-7 (Version None)
Quarter: 2004Q3

REPORT INFORMATION
  Report Type: 
  Country: None (occurrence: None)
  Receive Date: 20040921
  Receipt Date: 20040525
  Transmission Date: 20050211
  Serious: Yes (Hospitalization)
  Sender: FDA-Public Use
  Company Number: 163-20785-04050591 (0)

PATIENT
  Age: 65 Year
  Sex: Female

DRUGS (3)
  1. THALOMID [Suspect]
     Indication: MULTIPLE MYELOMA
     Dosage: 50 MG, DAILY, ORAL
     Route: 048
     Dates: start: 20031124, end: 20040113
  2. THALOMID [Suspect]
     Indication: MULTIPLE MYELOMA
     Dosage: 50 MG, DAILY, ORAL
     Route: 048
     Dates: start: 20011128
  3. INTERFERON ALFA - 2B (INTERFERON ALFA-2B) [Suspect]
     Indication: MULTIPLE MYELOMA
     Dosage: 1 MILLION UNITS /M2 QM-W-F, SUBCUTANEOUS
     Route: 058
     Dates: start: 20031124, end: 20040113

REACTIONS (2)
  - INFLUENZA [None]
  - PNEUMONIA [None]
